FAERS Safety Report 10253519 (Version 2)
Quarter: 2014Q3

REPORT INFORMATION
  Report Type: Spontaneous
  Country: US (occurrence: US)
  Receive Date: 20140623
  Receipt Date: 20140825
  Transmission Date: 20150326
  Serious: Yes (Hospitalization)
  Sender: FDA-Public Use
  Company Number: US-ROCHE-1418791

PATIENT
  Sex: Female

DRUGS (4)
  1. OMEPRAZOLE. [Concomitant]
     Active Substance: OMEPRAZOLE
     Indication: ABDOMINAL DISTENSION
  2. ACTONEL [Concomitant]
     Active Substance: RISEDRONATE SODIUM
  3. BONIVA [Suspect]
     Active Substance: IBANDRONATE SODIUM
     Indication: OSTEOPOROSIS
     Route: 065
  4. RECLAST [Concomitant]
     Active Substance: ZOLEDRONIC ACID
     Indication: OSTEOPOROSIS

REACTIONS (1)
  - Abdominal distension [Unknown]
